FAERS Safety Report 9413629 (Version 1)
Quarter: 2013Q3

REPORT INFORMATION
  Report Type: Spontaneous
  Country: US (occurrence: US)
  Receive Date: 20130722
  Receipt Date: 20130722
  Transmission Date: 20140515
  Serious: Yes (Hospitalization)
  Sender: FDA-Public Use
  Company Number: US-TARO-2013P1006064

PATIENT
  Age: 84 Year
  Sex: 0

DRUGS (19)
  1. WARFARIN SODIUM TABLETS USP 3MG [Suspect]
     Indication: ATRIAL FIBRILLATION
     Dates: end: 20130401
  2. WARFARIN SODIUM TABLETS USP 3MG [Suspect]
     Indication: AORTIC VALVE REPLACEMENT
     Dates: end: 20130401
  3. WARFARIN SODIUM TABLETS USP 3MG [Suspect]
     Indication: MITRAL VALVE REPLACEMENT
     Dates: end: 20130401
  4. WARFARIN SODIUM TABLETS USP 3MG [Suspect]
     Dates: end: 20130401
  5. WARFARIN SODIUM TABLETS USP 3MG [Suspect]
     Indication: ATRIAL FIBRILLATION
     Dates: start: 20130402, end: 20130417
  6. WARFARIN SODIUM TABLETS USP 3MG [Suspect]
     Indication: AORTIC VALVE REPLACEMENT
     Dates: start: 20130402, end: 20130417
  7. WARFARIN SODIUM TABLETS USP 3MG [Suspect]
     Indication: MITRAL VALVE REPLACEMENT
     Dates: start: 20130402, end: 20130417
  8. WARFARIN SODIUM TABLETS USP 3MG [Suspect]
     Dates: start: 20130402, end: 20130417
  9. FISH OIL [Suspect]
  10. LIPITOR [Concomitant]
     Route: 048
  11. LASIX [Concomitant]
     Route: 048
  12. GABAPENTIN [Concomitant]
     Route: 048
  13. GABAPENTIN [Concomitant]
     Route: 048
  14. GLIPIZIDE [Concomitant]
     Route: 048
  15. VICODIN [Concomitant]
  16. LEVOTHYROXINE [Concomitant]
     Route: 048
  17. METOCLOPRAMIDE [Concomitant]
     Route: 048
  18. RAMIPRIL [Concomitant]
     Route: 048
  19. SPIRONOLACTONE [Concomitant]
     Route: 048

REACTIONS (20)
  - International normalised ratio increased [Recovered/Resolved]
  - Dyspnoea [Recovered/Resolved]
  - Fatigue [Unknown]
  - Haemorrhagic anaemia [Recovering/Resolving]
  - Renal failure acute [Recovering/Resolving]
  - Renal failure chronic [Recovering/Resolving]
  - Gastrooesophageal reflux disease [Unknown]
  - Oesophageal papilloma [Unknown]
  - Oedema [Unknown]
  - Hypoxia [Recovered/Resolved]
  - Dizziness [Unknown]
  - Gastrointestinal haemorrhage [Recovered/Resolved]
  - Angina pectoris [Recovered/Resolved]
  - Hypercoagulation [Recovered/Resolved]
  - Inflammation [Unknown]
  - Decreased appetite [Unknown]
  - Weight decreased [Unknown]
  - Hip fracture [Unknown]
  - Respiratory distress [Unknown]
  - Pacemaker generated rhythm [Unknown]
